FAERS Safety Report 7584129-5 (Version None)
Quarter: 2011Q2

REPORT INFORMATION
  Report Type: 
  Country: None (occurrence: None)
  Receive Date: 20110630
  Receipt Date: 20110608
  Transmission Date: 20111010
  Serious: Yes (Other)
  Sender: FDA-Public Use
  Company Number: IT-PFIZER INC-2011143650

PATIENT

DRUGS (4)
  1. TORISEL [Suspect]
     Indication: RENAL CANCER
     Dosage: 25 MG, WEEKLY
     Route: 042
     Dates: start: 20081015, end: 20081217
  2. ALGINOR [Concomitant]
     Dosage: 15 DROPS, DAILY
     Route: 048
     Dates: start: 20081015, end: 20081218
  3. OMEPRAZOLE [Concomitant]
     Dosage: 10 MG, 1X/DAY
     Route: 048
     Dates: start: 20081015, end: 20081218
  4. METOCLOPRAMIDE HYDROCHLORIDE [Concomitant]
     Dosage: 10 MG, UNK
     Route: 048
     Dates: start: 20081015, end: 20081218

REACTIONS (1)
  - PRIAPISM [None]
